FAERS Safety Report 8370702-3 (Version None)
Quarter: 2012Q2

REPORT INFORMATION
  Report Type: 
  Country: None (occurrence: None)
  Receive Date: 20120518
  Receipt Date: 20120510
  Transmission Date: 20120825
  Serious: Yes (Other)
  Sender: FDA-Public Use
  Company Number: JP-B.I. PHARMACEUTICALS,INC./RIDGEFIELD-2012-BP-10988YA

PATIENT
  Age: 75 Year
  Sex: Male

DRUGS (7)
  1. SELECTOL (CELIPROLOL HYDROCHLORIDE) [Concomitant]
  2. GARENOXACIN MESYLATE [Suspect]
     Dosage: 400 MG
     Route: 048
     Dates: start: 20120509, end: 20120509
  3. UNISIA (CANDESARTAN CILEXETIL, AMLODIPINE BESILATE) [Concomitant]
  4. LANSOPRAZOLE [Concomitant]
  5. TAMSULOSIN HCL [Suspect]
     Route: 048
  6. ATELEC (CILNIDIPINE) [Concomitant]
  7. TENORMIN [Concomitant]

REACTIONS (1)
  - CARDIAC ARREST [None]
